FAERS Safety Report 16341555 (Version 1)
Quarter: 2019Q2

REPORT INFORMATION
  Report Type: Spontaneous
  Country: CA (occurrence: CA)
  Receive Date: 20190522
  Receipt Date: 20190522
  Transmission Date: 20190711
  Serious: Yes (Other)
  Sender: FDA-Public Use
  Company Number: CA-AUROBINDO-AUR-APL-2019-027423

PATIENT

DRUGS (26)
  1. GABAPENTIN. [Suspect]
     Active Substance: GABAPENTIN
     Indication: NERVOUS SYSTEM DISORDER
     Dosage: 100 MILLIGRAM, THREE TIMES A DAY
     Route: 048
  2. PREDNISONE. [Concomitant]
     Active Substance: PREDNISONE
     Indication: INFLAMMATION
     Dosage: UNK
     Route: 065
  3. SPIRONOLACTONE. [Suspect]
     Active Substance: SPIRONOLACTONE
     Indication: PRODUCT USED FOR UNKNOWN INDICATION
     Dosage: 100 MILLIGRAM, ONCE A DAY
     Route: 048
  4. ACETAMINOPHEN;CODEINE [Concomitant]
     Active Substance: ACETAMINOPHEN\CODEINE PHOSPHATE
     Indication: PAIN MANAGEMENT
     Dosage: UNK
     Route: 065
  5. COVERSYL [Concomitant]
     Active Substance: PERINDOPRIL
     Indication: HYPERTENSION
     Dosage: 8.0 MILLIGRAM, ONCE A DAY
     Route: 048
  6. MORPHINE [Concomitant]
     Active Substance: MORPHINE
     Dosage: 0.5 MILLIGRAM
     Route: 048
  7. PLANTAGO OVATA [Concomitant]
     Active Substance: HERBALS\PLANTAGO OVATA LEAF
     Indication: GASTROINTESTINAL MOTILITY DISORDER
     Dosage: UNK
     Route: 048
  8. VITAMIN D3 [Concomitant]
     Active Substance: CHOLECALCIFEROL
     Indication: VITAMIN SUPPLEMENTATION
     Dosage: 1000.0 INTERNATIONAL UNIT, ONCE A DAY
     Route: 065
  9. REMICADE [Suspect]
     Active Substance: INFLIXIMAB
     Indication: PRODUCT USED FOR UNKNOWN INDICATION
     Dosage: 500 MILLIGRAM, 1 EVERY 5 WEEKS
     Route: 042
  10. BETAHISTINE [Concomitant]
     Active Substance: BETAHISTINE
     Indication: DIZZINESS
     Dosage: 16.0 MILLIGRAM
     Route: 065
  11. FORMOTEROL [Concomitant]
     Active Substance: FORMOTEROL
     Indication: RESPIRATORY DISORDER
     Dosage: UNK
     Route: 065
  12. WARFARIN [Concomitant]
     Active Substance: WARFARIN
     Indication: ANTICOAGULANT THERAPY
     Dosage: UNK, ONCE A DAY
     Route: 065
  13. ACTEMRA [Suspect]
     Active Substance: TOCILIZUMAB
     Indication: PRODUCT USED FOR UNKNOWN INDICATION
     Dosage: 162.0 MILLIGRAM, ONCE A DAY
  14. SLOW K [Concomitant]
     Active Substance: POTASSIUM CHLORIDE
     Indication: PRODUCT USED FOR UNKNOWN INDICATION
     Dosage: 600.0 MILLIGRAM, TWO TIMES A DAY
     Route: 048
  15. CLONAZEPAM. [Concomitant]
     Active Substance: CLONAZEPAM
     Indication: SEDATIVE THERAPY
     Dosage: 0.05 MILLIGRAM
     Route: 048
  16. MORPHINE [Concomitant]
     Active Substance: MORPHINE
     Indication: PAIN MANAGEMENT
     Dosage: UNK UNK, ONCE A DAY
     Route: 065
  17. MYCOPHENOLATE MOFETIL. [Concomitant]
     Active Substance: MYCOPHENOLATE MOFETIL
     Indication: INFLAMMATION
     Dosage: 500 MILLIGRAM, TWO TIMES A DAY
     Route: 048
  18. HUMIRA [Suspect]
     Active Substance: ADALIMUMAB
     Indication: PRODUCT USED FOR UNKNOWN INDICATION
     Dosage: 40.0 MILLIGRAM, ONCE A DAY
     Route: 058
  19. DICYCLOMINE HYDROCHLORIDE. [Concomitant]
     Active Substance: DICYCLOMINE HYDROCHLORIDE
     Indication: MUSCLE SPASMS
     Dosage: 20.0 MILLIGRAM, ONCE A DAY
     Route: 048
  20. NIFEDIPINE. [Concomitant]
     Active Substance: NIFEDIPINE
     Indication: HYPERTENSION
     Dosage: 30.0 MILLIGRAM
     Route: 048
  21. OMEPRAZOLE. [Concomitant]
     Active Substance: OMEPRAZOLE
     Indication: DYSPEPSIA
     Dosage: 20.0 MILLIGRAM
     Route: 048
  22. CELLCEPT [Suspect]
     Active Substance: MYCOPHENOLATE MOFETIL\MYCOPHENOLATE MOFETIL HYDROCHLORIDE
     Indication: SCLERITIS
     Dosage: 1.0 GRAM, TWO TIMES A DAY
     Route: 065
  23. PROCYTOX [Suspect]
     Active Substance: CYCLOPHOSPHAMIDE
     Indication: PRODUCT USED FOR UNKNOWN INDICATION
     Dosage: 1200 MILLIGRAM, TWO TIMES A DAY
     Route: 042
  24. ALENDRONATE SODIUM. [Concomitant]
     Active Substance: ALENDRONATE SODIUM
     Indication: BONE DISORDER
     Dosage: 70.0 MILLIGRAM, ONCE A DAY
     Route: 048
  25. METHOTREXATE. [Suspect]
     Active Substance: METHOTREXATE
     Indication: PRODUCT USED FOR UNKNOWN INDICATION
     Dosage: 25.0 MILLIGRAM, ONCE A DAY
     Route: 065
  26. ONDANSETRON HYDROCHLORIDE. [Suspect]
     Active Substance: ONDANSETRON HYDROCHLORIDE
     Indication: NAUSEA
     Dosage: 8.0 MILLIGRAM, TWO TIMES A DAY
     Route: 048

REACTIONS (1)
  - Therapy partial responder [Unknown]
